FAERS Safety Report 8238825-7 (Version None)
Quarter: 2012Q1

REPORT INFORMATION
  Report Type: 
  Country: None (occurrence: None)
  Receive Date: 20120327
  Receipt Date: 20120320
  Transmission Date: 20120608
  Serious: Yes (Other)
  Sender: FDA-Public Use
  Company Number: CHPA2012US001239

PATIENT
  Age: 71 Year
  Sex: Male

DRUGS (2)
  1. EXCEDRIN TENSION HEADACHE CAPLETS [Suspect]
     Indication: PAIN
     Dosage: 1 DF, PRN
     Route: 048
  2. EXCEDRIN TENSION HEADACHE CAPLETS [Suspect]
     Indication: HEADACHE
     Dosage: 1 DF, TWICE OR THREE TIMES A DAY, PRN

REACTIONS (3)
  - DIABETES MELLITUS [None]
  - DRUG DEPENDENCE [None]
  - UNDERDOSE [None]
